FAERS Safety Report 4845279-7 (Version None)
Quarter: 2005Q4

REPORT INFORMATION
  Report Type: 
  Country: None (occurrence: None)
  Receive Date: 20051125
  Receipt Date: 20051115
  Transmission Date: 20060501
  Serious: Yes (Hospitalization, Other)
  Sender: FDA-Public Use
  Company Number: 2005157208

PATIENT
  Age: 58 Year
  Sex: Male
  Weight: 158.759 kg

DRUGS (2)
  1. CELEBREX [Suspect]
     Indication: PAIN
     Dosage: ORAL
     Route: 048
     Dates: start: 19980101, end: 20041201
  2. HYDROCODONE BITARTRATE [Concomitant]

REACTIONS (8)
  - CARDIAC FAILURE [None]
  - CHEST PAIN [None]
  - ERYTHEMA [None]
  - HEADACHE [None]
  - HEART RATE IRREGULAR [None]
  - HYPERTENSION [None]
  - OBSTRUCTION [None]
  - RASH [None]
